FAERS Safety Report 8107257-4 (Version None)
Quarter: 2011Q4

REPORT INFORMATION
  Report Type: 
  Country: None (occurrence: None)
  Receive Date: 20111223
  Receipt Date: 20110614
  Transmission Date: 20120403
  Serious: Yes (Life-Threatening)
  Sender: FDA-Public Use
  Company Number: PHHY2011US52665

PATIENT
  Sex: Male

DRUGS (2)
  1. CLOZARIL [Suspect]
  2. COUMADIN [Suspect]

REACTIONS (2)
  - THROMBOSIS [None]
  - PULMONARY EMBOLISM [None]
